FAERS Safety Report 8026186-8 (Version None)
Quarter: 2012Q1

REPORT INFORMATION
  Report Type: 
  Country: None (occurrence: None)
  Receive Date: 20120105
  Receipt Date: 20110214
  Transmission Date: 20120608
  Serious: No
  Sender: FDA-Public Use
  Company Number: US-ABBOTT-11P-163-0705117-00

PATIENT
  Age: 56 Year
  Sex: Female

DRUGS (4)
  1. LORAZEPAM [Concomitant]
     Indication: ANXIETY
  2. SYNTHROID [Suspect]
     Indication: BASEDOW'S DISEASE
     Route: 048
     Dates: end: 20110125
  3. LEXAPRO [Suspect]
     Indication: ANXIETY
     Route: 048
     Dates: start: 20101231
  4. SYNTHROID [Suspect]
     Indication: HYPOTHYROIDISM
     Dates: start: 20110126

REACTIONS (6)
  - INSOMNIA [None]
  - HYPOTHYROIDISM [None]
  - ANXIETY [None]
  - DYSPNOEA [None]
  - ALOPECIA [None]
  - FATIGUE [None]
